FAERS Safety Report 6355987-7 (Version None)
Quarter: 2009Q3

REPORT INFORMATION
  Report Type: 
  Country: None (occurrence: None)
  Receive Date: 20090915
  Receipt Date: 20090827
  Transmission Date: 20100115
  Serious: Yes (Death)
  Sender: FDA-Public Use
  Company Number: PL-AMGEN-US362867

PATIENT
  Sex: Male
  Weight: 86 kg

DRUGS (6)
  1. ENBREL [Suspect]
     Indication: RHEUMATOID ARTHRITIS
     Route: 058
     Dates: start: 20080929
  2. DILZEM ^ORION^ [Concomitant]
     Indication: CORONARY ARTERY DISEASE
     Route: 048
     Dates: start: 20080901
  3. DILZEM ^ORION^ [Concomitant]
     Indication: HYPERTENSION
  4. CARVEDILOL [Concomitant]
     Indication: CORONARY ARTERY DISEASE
     Route: 048
     Dates: start: 20080901
  5. DICLOFENAC SODIUM [Concomitant]
     Indication: RHEUMATOID ARTHRITIS
     Dosage: 100 MG ORAL OR RECTALLY AS NEEDED
     Route: 065
  6. PRESTARIUM [Concomitant]
     Indication: HYPERTENSION
     Route: 048
     Dates: start: 20080901

REACTIONS (1)
  - CARDIOVASCULAR DISORDER [None]
